FAERS Safety Report 15799819 (Version 1)
Quarter: 2019Q1

REPORT INFORMATION
  Report Type: Spontaneous
  Country: US (occurrence: US)
  Receive Date: 20190108
  Receipt Date: 20190108
  Transmission Date: 20190417
  Serious: Yes (Hospitalization, Other)
  Sender: FDA-Public Use
  Company Number: US-ENDO PHARMACEUTICALS INC-2019-016450

PATIENT
  Age: 35 Year
  Sex: Male

DRUGS (3)
  1. OPANA ER [Suspect]
     Active Substance: OXYMORPHONE HYDROCHLORIDE
     Indication: PRODUCT USED FOR UNKNOWN INDICATION
     Dosage: 80-100 MG, DAILY
     Route: 042
  2. GABAPENTIN. [Concomitant]
     Active Substance: GABAPENTIN
     Indication: ANXIETY
     Dosage: UNK
  3. GABAPENTIN. [Concomitant]
     Active Substance: GABAPENTIN
     Indication: MUSCLE SPASMS

REACTIONS (6)
  - Hypertensive crisis [Recovered/Resolved]
  - Retinal detachment [Recovering/Resolving]
  - Intentional product misuse [Unknown]
  - Drug abuse [Unknown]
  - Acute kidney injury [Not Recovered/Not Resolved]
  - Thrombotic microangiopathy [Recovered/Resolved]
